FAERS Safety Report 6552138-0 (Version None)
Quarter: 2010Q1

REPORT INFORMATION
  Report Type: 
  Country: None (occurrence: None)
  Receive Date: 20100121
  Receipt Date: 20100109
  Transmission Date: 20100710
  Serious: Yes (Other)
  Sender: FDA-Public Use
  Company Number: PAR_03311_2010

PATIENT
  Age: 75 Year
  Sex: Female

DRUGS (2)
  1. QUESTRAN [Suspect]
     Indication: INTESTINAL FUNCTIONAL DISORDER
     Dosage: (1 DF QD, ONE SCOOP PER DAY ORAL)
     Route: 048
     Dates: start: 20090501
  2. SYNTHROID [Concomitant]

REACTIONS (4)
  - MUSCLE ATROPHY [None]
  - MUSCLE SPASMS [None]
  - MUSCULAR WEAKNESS [None]
  - MYALGIA [None]
